FAERS Safety Report 23921694 (Version 2)
Quarter: 2024Q3

REPORT INFORMATION
  Report Type: Spontaneous
  Country: US (occurrence: US)
  Receive Date: 20240530
  Receipt Date: 20240819
  Transmission Date: 20241017
  Serious: No
  Sender: CSL BEHRING
  Company Number: US-BEH-2024172499

PATIENT
  Age: 73 Year
  Sex: Female

DRUGS (25)
  1. ZEMAIRA [Suspect]
     Active Substance: .ALPHA.1-PROTEINASE INHIBITOR HUMAN
     Indication: Asthma
     Dosage: 60 MG/KG, QW
     Route: 042
  2. ZEMAIRA [Suspect]
     Active Substance: .ALPHA.1-PROTEINASE INHIBITOR HUMAN
     Dosage: 60 MG/KG, QW
     Route: 042
  3. GAMUNEX-C [Concomitant]
     Active Substance: HUMAN IMMUNOGLOBULIN G
     Dosage: UNK
     Dates: start: 20240507
  4. BREYNA [Concomitant]
     Active Substance: BUDESONIDE\FORMOTEROL FUMARATE
  5. GABAPENTIN [Concomitant]
     Active Substance: GABAPENTIN
  6. FOSFOMYCIN TROMETHAMINE [Concomitant]
     Active Substance: FOSFOMYCIN TROMETHAMINE
  7. LEVAQUIN [Concomitant]
     Active Substance: LEVOFLOXACIN
  8. DEXILANT [Concomitant]
     Active Substance: DEXLANSOPRAZOLE
  9. CHOLECALCIFEROL [Concomitant]
     Active Substance: CHOLECALCIFEROL
  10. FLUTICASONE [Concomitant]
     Active Substance: FLUTICASONE
  11. SALMETEROL [Concomitant]
     Active Substance: SALMETEROL
  12. SPIRIVA RESPIMAT [Concomitant]
     Active Substance: TIOTROPIUM BROMIDE
  13. PROPRANOLOL [Concomitant]
     Active Substance: PROPRANOLOL HYDROCHLORIDE
  14. MECLIZINE HYDROCHLORIDE [Concomitant]
     Active Substance: MECLIZINE HYDROCHLORIDE
  15. SINGULAIR [Concomitant]
     Active Substance: MONTELUKAST SODIUM
  16. AMLODIPINE BESYLATE [Concomitant]
     Active Substance: AMLODIPINE BESYLATE
  17. ATORVASTATIN [Concomitant]
     Active Substance: ATORVASTATIN
  18. CARVEDILOL [Concomitant]
     Active Substance: CARVEDILOL
  19. INTRAROSA [Concomitant]
     Active Substance: PRASTERONE
  20. LOSARTAN POT HCTZ [Concomitant]
  21. MAXALT [Concomitant]
     Active Substance: RIZATRIPTAN BENZOATE
  22. NASACORT ALLERGO [Concomitant]
  23. OLOPATADINE [Concomitant]
     Active Substance: OLOPATADINE
  24. VITAMIN D [Concomitant]
     Active Substance: VITAMIN D NOS
  25. BUDESONIDE [Concomitant]
     Active Substance: BUDESONIDE

REACTIONS (6)
  - Urinary tract infection [Not Recovered/Not Resolved]
  - Arthralgia [Recovered/Resolved]
  - Peripheral swelling [Recovered/Resolved]
  - Joint swelling [Recovered/Resolved]
  - Upper respiratory tract infection [Recovered/Resolved]
  - Off label use [Unknown]

NARRATIVE: CASE EVENT DATE: 20240507
